FAERS Safety Report 10070811 (Version 2)
Quarter: 2014Q2

REPORT INFORMATION
  Report Type: Report from Study
  Country: US (occurrence: US)
  Receive Date: 20140410
  Receipt Date: 20140417
  Transmission Date: 20141212
  Serious: Yes (Death, Hospitalization)
  Sender: FDA-Public Use
  Company Number: US-ACTELION-A-US2014-97199

PATIENT
  Age: 80 Year
  Sex: Female

DRUGS (5)
  1. MACITENTAN [Suspect]
     Indication: PULMONARY ARTERIAL HYPERTENSION
     Dosage: UNK, QD
     Route: 048
     Dates: start: 201312
  2. VENTAVIS [Suspect]
     Indication: PULMONARY ARTERIAL HYPERTENSION
     Dosage: 5 MCG, 4-9 X DAILY
     Route: 055
     Dates: start: 20130125
  3. WARFARIN [Concomitant]
  4. REVATIO [Concomitant]
  5. TYVASO [Concomitant]

REACTIONS (8)
  - Septic shock [Fatal]
  - Bacterial sepsis [Unknown]
  - Encephalopathy [Unknown]
  - Acute respiratory failure [Unknown]
  - Dysphagia [Unknown]
  - Nasal congestion [Unknown]
  - Upper respiratory tract infection [Unknown]
  - Dyspnoea [Unknown]
